FAERS Safety Report 6228947-4 (Version None)
Quarter: 2009Q2

REPORT INFORMATION
  Report Type: 
  Country: None (occurrence: None)
  Receive Date: 20090615
  Receipt Date: 20090608
  Transmission Date: 20091009
  Serious: Yes (Other)
  Sender: FDA-Public Use
  Company Number: US-BAYER-200921945NA

PATIENT
  Age: 35 Year
  Sex: Female
  Weight: 66 kg

DRUGS (1)
  1. MIRENA [Suspect]
     Indication: CONTRACEPTION
     Dosage: CONTINUOUS
     Route: 015
     Dates: start: 20081101, end: 20090306

REACTIONS (5)
  - BLINDNESS TRANSIENT [None]
  - EYE SWELLING [None]
  - MIOSIS [None]
  - PROCEDURAL PAIN [None]
  - VISION BLURRED [None]
